FAERS Safety Report 9027338 (Version 2)
Quarter: 2014Q2

REPORT INFORMATION
  Report Type: Spontaneous
  Country: US (occurrence: US)
  Receive Date: 20130123
  Receipt Date: 20140404
  Transmission Date: 20141212
  Serious: Yes (Hospitalization)
  Sender: FDA-Public Use
  Company Number: US-B.I. PHARMACEUTICALS,INC./RIDGEFIELD-2013-BI-01784BP

PATIENT
  Age: 79 Year
  Sex: Male
  Weight: 102.06 kg

DRUGS (22)
  1. PRADAXA [Suspect]
     Indication: ANTICOAGULANT THERAPY
     Dosage: 150 MG
     Route: 065
     Dates: start: 20110318, end: 20110321
  2. ASPIRIN [Suspect]
     Indication: PRODUCT USED FOR UNKNOWN INDICATION
     Dosage: 81 MG
     Route: 048
     Dates: end: 20110321
  3. PLAVIX [Suspect]
     Indication: PRODUCT USED FOR UNKNOWN INDICATION
     Route: 065
     Dates: start: 201101, end: 201102
  4. AMOXICILLIN [Concomitant]
     Route: 065
  5. DESOXIMETASONE [Concomitant]
     Route: 065
     Dates: start: 2007
  6. BUMEX [Concomitant]
     Route: 065
     Dates: start: 201101
  7. COLACE [Concomitant]
     Route: 065
  8. COREG [Concomitant]
     Route: 065
     Dates: start: 201101
  9. FOLIC ACID [Concomitant]
     Route: 065
  10. GLIMEPIRIDE [Concomitant]
     Route: 065
     Dates: start: 2007
  11. INSULIN [Concomitant]
     Route: 065
  12. IMDUR [Concomitant]
     Route: 065
     Dates: start: 201101
  13. IRON [Concomitant]
     Route: 065
  14. LIPITOR [Concomitant]
     Route: 065
     Dates: start: 201101
  15. NITROSTAT [Concomitant]
     Route: 065
     Dates: start: 201101
  16. NORVASC [Concomitant]
     Route: 065
     Dates: start: 201003
  17. OMACOR [Concomitant]
     Route: 065
  18. ONGLYZA [Concomitant]
     Route: 065
     Dates: start: 201101
  19. TEMAZEPAM [Concomitant]
     Route: 065
     Dates: start: 200706, end: 201103
  20. TYLENOL [Concomitant]
     Route: 065
  21. ZYVOX [Concomitant]
     Route: 065
  22. LOVAZA [Concomitant]
     Route: 065
     Dates: start: 200710

REACTIONS (6)
  - Upper gastrointestinal haemorrhage [Recovered/Resolved]
  - Haemorrhagic anaemia [Recovered/Resolved]
  - Thrombocytopenia [Unknown]
  - Acute respiratory failure [Unknown]
  - Renal failure acute [Unknown]
  - Contusion [Unknown]
